FAERS Safety Report 6639010-2 (Version None)
Quarter: 2010Q1

REPORT INFORMATION
  Report Type: 
  Country: None (occurrence: None)
  Receive Date: 20100317
  Receipt Date: 20100310
  Transmission Date: 20100710
  Serious: Yes (Hospitalization)
  Sender: FDA-Public Use
  Company Number: ES-MPIJNJ-2009-03612

PATIENT

DRUGS (11)
  1. VELCADE [Suspect]
     Indication: MULTIPLE MYELOMA
     Dosage: 2.2 MG, UNK
     Route: 042
     Dates: start: 20090420, end: 20090608
  2. CNT0328 [Suspect]
     Indication: MULTIPLE MYELOMA
     Dosage: 480 MG, UNK
     Route: 042
     Dates: start: 20090420, end: 20090907
  3. DEXAMETHASONE [Suspect]
     Indication: MULTIPLE MYELOMA
     Dosage: 40 MG, UNK
     Route: 048
     Dates: start: 20090611, end: 20090910
  4. OMEPRAZOLE [Concomitant]
     Indication: PROPHYLAXIS
     Dosage: 20 MG, UNK
     Route: 048
  5. CIPROFLOXACIN [Concomitant]
     Indication: PROPHYLAXIS
     Dosage: 500 MG, UNK
     Route: 048
     Dates: start: 20090713
  6. HIDROXIL B12 B6 B1 [Concomitant]
     Indication: NEUROPATHY PERIPHERAL
     Dosage: 505 MG, UNK
     Route: 048
     Dates: start: 20090720
  7. IDALPREM [Concomitant]
     Indication: INSOMNIA
     Dosage: 2.5 MG, UNK
     Route: 048
     Dates: start: 20090622
  8. CODEINE SULFATE [Concomitant]
     Indication: MYALGIA
     Dosage: 30 MG, UNK
     Route: 048
     Dates: start: 20090525
  9. ZOLEDRONIC ACID [Concomitant]
     Indication: PROPHYLAXIS
     Dosage: 4 MG, UNK
     Route: 042
     Dates: start: 20090427
  10. CARDYL [Concomitant]
     Indication: HYPERTRIGLYCERIDAEMIA
     Dosage: 40 MG, UNK
     Route: 048
     Dates: start: 20090601
  11. SECALIP [Concomitant]
     Indication: HYPERTRIGLYCERIDAEMIA
     Dosage: 145 MG, UNK
     Route: 048
     Dates: start: 20090601

REACTIONS (3)
  - FURUNCLE [None]
  - HYPERGLYCAEMIA [None]
  - VOCAL CORD PARALYSIS [None]
